FAERS Safety Report 13337465 (Version 1)
Quarter: 2017Q1

REPORT INFORMATION
  Report Type: Report from Study
  Country: IT (occurrence: IT)
  Receive Date: 20170315
  Receipt Date: 20170315
  Transmission Date: 20170428
  Serious: Yes (Other)
  Sender: FDA-Public Use
  Company Number: IT-TEVA-749303ACC

PATIENT
  Sex: Male

DRUGS (6)
  1. DACTINOMYCIN [Suspect]
     Active Substance: DACTINOMYCIN
     Indication: CHEMOTHERAPY
     Dosage: 0.5MG ON DAYS 1 AND 2
  2. METHOTREXATE. [Suspect]
     Active Substance: METHOTREXATE
     Dosage: 200 MG/ME2 IN 500ML OF NORMAL SALINE OVER 12 HOURS ON DAY 1
  3. CYCLOPHOSPHAMIDE. [Suspect]
     Active Substance: CYCLOPHOSPHAMIDE
     Indication: CHEMOTHERAPY
     Dosage: 600 MG/ME2 IN 250 ML OF NORMAL SALINE OVER 30 MINUTES
  4. ETOPOSIDE. [Suspect]
     Active Substance: ETOPOSIDE
     Indication: CHEMOTHERAPY
     Dosage: 100 MG/ME2 IN 250 ML OF NORMAL SALINE OVER 1 HOUR
  5. METHOTREXATE. [Suspect]
     Active Substance: METHOTREXATE
     Indication: CHEMOTHERAPY
     Dosage: 100 MG/ME2 IN 100ML OF NORMAL SALINE OVER 15 MINUTES
  6. VINCRISTINE [Suspect]
     Active Substance: VINCRISTINE
     Indication: CHEMOTHERAPY
     Dosage: 1 MG/ME2 ON DAY 8, EVERY 21 DAYS (3 WEEKS)

REACTIONS (1)
  - Mucosal inflammation [Unknown]
